FAERS Safety Report 19399528 (Version 1)
Quarter: 2021Q2

REPORT INFORMATION
  Report Type: Spontaneous
  Country: US (occurrence: US)
  Receive Date: 20210610
  Receipt Date: 20210610
  Transmission Date: 20210717
  Serious: Yes (Life-Threatening, Hospitalization, Other)
  Sender: FDA-Public Use
  Company Number: None

PATIENT
  Age: 71 Year
  Sex: Female
  Weight: 66.8 kg

DRUGS (2)
  1. ANDEXANET ALFA [Suspect]
     Active Substance: ANDEXANET ALFA
     Indication: SURGERY
     Dosage: ?          OTHER FREQUENCY:BOLUS + INFUSION;?
     Route: 042
     Dates: start: 20210605, end: 20210605
  2. APIXABAN [Concomitant]
     Active Substance: APIXABAN
     Dates: start: 20210602, end: 20210605

REACTIONS (9)
  - Intestinal perforation [None]
  - Electrocardiogram ST segment elevation [None]
  - Colitis [None]
  - Atrial fibrillation [None]
  - Acute myocardial infarction [None]
  - Troponin increased [None]
  - Abdominal pain [None]
  - Sinus tachycardia [None]
  - Coronary artery thrombosis [None]

NARRATIVE: CASE EVENT DATE: 20210605
